FAERS Safety Report 10257480 (Version 1)
Quarter: 2014Q2

REPORT INFORMATION
  Report Type: Spontaneous
  Country: US (occurrence: US)
  Receive Date: 20140625
  Receipt Date: 20140625
  Transmission Date: 20141212
  Serious: No
  Sender: FDA-Public Use
  Company Number: US-GLAXOSMITHKLINE-A1031983A

PATIENT
  Age: 34 Year
  Sex: Female

DRUGS (1)
  1. VERAMYST [Suspect]
     Indication: HEADACHE
     Dosage: 2SPR PER DAY
     Route: 045
     Dates: start: 2004

REACTIONS (6)
  - Head discomfort [Not Recovered/Not Resolved]
  - Throat irritation [Unknown]
  - Dry throat [Unknown]
  - Drug ineffective [Unknown]
  - Off label use [Unknown]
  - Product quality issue [Unknown]
